FAERS Safety Report 6317500-X (Version None)
Quarter: 2009Q3

REPORT INFORMATION
  Report Type: 
  Country: None (occurrence: None)
  Receive Date: 20090821
  Receipt Date: 20090811
  Transmission Date: 20100115
  Serious: Yes (Other)
  Sender: FDA-Public Use
  Company Number: US-JNJFOC-20090803758

PATIENT
  Age: 20 Year
  Sex: Female
  Weight: 52.62 kg

DRUGS (5)
  1. MONISTAT 1 COMB PCK TRIPLE ACTION-1 OVULE INSERT W/APPL+EXT CRM + C/W [Suspect]
     Route: 067
  2. MONISTAT 1 COMB PCK TRIPLE ACTION-1 OVULE INSERT W/APPL+EXT CRM + C/W [Suspect]
     Indication: DRUG USE FOR UNKNOWN INDICATION
     Route: 067
  3. MONISTAT 1 COMB PCK TRIPLE ACTION-1 OVULE INSERT W/APPL+EXT CRM + C/W [Suspect]
     Route: 061
  4. MONISTAT 1 COMB PCK TRIPLE ACTION-1 OVULE INSERT W/APPL+EXT CRM + C/W [Suspect]
     Route: 061
  5. UNSPECIFIED BIRTH CONTROL [Concomitant]
     Indication: CONTRACEPTION

REACTIONS (1)
  - GENITAL HAEMORRHAGE [None]
